FAERS Safety Report 6749670-3 (Version None)
Quarter: 2010Q2

REPORT INFORMATION
  Report Type: 
  Country: None (occurrence: None)
  Receive Date: 20100601
  Receipt Date: 20100521
  Transmission Date: 20101027
  Serious: Yes (Hospitalization)
  Sender: FDA-Public Use
  Company Number: B0657636A

PATIENT
  Sex: Female

DRUGS (6)
  1. LAMICTAL [Suspect]
     Indication: BIPOLAR DISORDER
     Dosage: 10MG PER DAY
     Route: 048
     Dates: start: 20100423, end: 20100506
  2. LAMICTAL [Suspect]
     Dosage: 25MG PER DAY
     Route: 048
     Dates: start: 20100507, end: 20100520
  3. LIMAS [Concomitant]
     Indication: BIPOLAR DISORDER
     Dosage: 400MG PER DAY
     Route: 048
     Dates: start: 20090515, end: 20100523
  4. DEPAKENE [Concomitant]
     Indication: BIPOLAR DISORDER
     Dosage: 400MG PER DAY
     Route: 048
     Dates: start: 20091224, end: 20100523
  5. ROHYPNOL [Concomitant]
     Indication: BIPOLAR DISORDER
     Dosage: 2MG PER DAY
     Route: 048
     Dates: start: 20100507, end: 20100523
  6. PURSENNID [Concomitant]
     Indication: CONSTIPATION
     Dosage: 36MG PER DAY
     Route: 048
     Dates: start: 20090807, end: 20100523

REACTIONS (11)
  - CONJUNCTIVAL HYPERAEMIA [None]
  - CORNEAL EROSION [None]
  - EATING DISORDER [None]
  - LIP SWELLING [None]
  - LIP ULCERATION [None]
  - PARAESTHESIA ORAL [None]
  - PHARYNGEAL ERYTHEMA [None]
  - PYREXIA [None]
  - RASH [None]
  - STEVENS-JOHNSON SYNDROME [None]
  - SWELLING FACE [None]
